FAERS Safety Report 25798290 (Version 1)
Quarter: 2025Q3

REPORT INFORMATION
  Report Type: Report from Study
  Country: US (occurrence: US)
  Receive Date: 20250912
  Receipt Date: 20250912
  Transmission Date: 20251021
  Serious: Yes (Other)
  Sender: ABBVIE
  Company Number: US-ABBVIE-6308737

PATIENT
  Age: 56 Year
  Sex: Female

DRUGS (1)
  1. SKYRIZI [Suspect]
     Active Substance: RISANKIZUMAB-RZAA
     Indication: Psoriatic arthropathy
     Route: 058
     Dates: start: 20250319

REACTIONS (11)
  - Gastrointestinal obstruction [Unknown]
  - Post-traumatic stress disorder [Unknown]
  - Neck pain [Not Recovered/Not Resolved]
  - Arthralgia [Not Recovered/Not Resolved]
  - Ocular hyperaemia [Not Recovered/Not Resolved]
  - Pruritus [Recovering/Resolving]
  - Dyspepsia [Unknown]
  - Foreign body in ear [Unknown]
  - Vomiting [Unknown]
  - Dry skin [Unknown]
  - Rash papular [Unknown]

NARRATIVE: CASE EVENT DATE: 20250101
